FAERS Safety Report 8615054-6 (Version None)
Quarter: 2012Q3

REPORT INFORMATION
  Report Type: 
  Country: None (occurrence: None)
  Receive Date: 20120823
  Receipt Date: 20120809
  Transmission Date: 20120928
  Serious: Yes (Other)
  Sender: FDA-Public Use
  Company Number: PL-RANBAXY-2012RR-59212

PATIENT
  Age: 30 Year
  Sex: Female

DRUGS (12)
  1. QUINAGOLIDE [Concomitant]
     Indication: HYPERPROLACTINAEMIA
     Dosage: UNK
     Route: 065
  2. BROMOCRIPTINE MESYLATE [Interacting]
     Indication: PROLACTINOMA
     Dosage: 7.5 MG/DAY
     Route: 065
  3. OXCARBAZEPINE [Interacting]
     Dosage: 1200 MG/DAY
     Route: 065
  4. CLARITHROMYCIN [Suspect]
     Indication: RESPIRATORY TRACT INFECTION
     Route: 065
  5. OXCARBAZEPINE [Interacting]
     Indication: POST-TRAUMATIC EPILEPSY
     Dosage: 600 MG
     Route: 065
  6. GABAPENTIN [Suspect]
     Indication: POST-TRAUMATIC EPILEPSY
     Route: 065
  7. KETOCONAZOLE [Suspect]
     Indication: VAGINAL LESION
     Dosage: 7 DAYS
     Route: 065
  8. BROMOCRIPTINE MESYLATE [Interacting]
     Dosage: 15 MG
     Route: 065
  9. LAMOTRIGINE [Suspect]
     Indication: POST-TRAUMATIC EPILEPSY
     Route: 065
  10. BROMOCRIPTINE MESYLATE [Interacting]
     Dosage: 20 MG
     Route: 065
  11. CABERGOLINE [Interacting]
     Indication: PROLACTINOMA
     Dosage: 0.25 MG, 2/WEEK
     Route: 065
  12. CABERGOLINE [Interacting]
     Dosage: 2 MG/ WEEK
     Route: 065

REACTIONS (14)
  - DRUG INTERACTION [None]
  - ORTHOSTATIC HYPOTENSION [None]
  - CONSTIPATION [None]
  - PSYCHOMOTOR HYPERACTIVITY [None]
  - DIZZINESS [None]
  - MENSTRUAL DISORDER [None]
  - OEDEMA [None]
  - ABNORMAL BEHAVIOUR [None]
  - CONDITION AGGRAVATED [None]
  - VOMITING [None]
  - DRUG EFFECT DECREASED [None]
  - BODY MASS INDEX INCREASED [None]
  - DIPLOPIA [None]
  - MUCOSAL DRYNESS [None]
